FAERS Safety Report 18238789 (Version 1)
Quarter: 2020Q3

REPORT INFORMATION
  Report Type: Report from Study
  Country: CA (occurrence: CA)
  Receive Date: 20200907
  Receipt Date: 20200907
  Transmission Date: 20201103
  Serious: Yes (Other)
  Sender: FDA-Public Use
  Company Number: CA-TAKEDA-2020TUS037615

PATIENT
  Age: 71 Year
  Sex: Male

DRUGS (5)
  1. ZOLADEX [Suspect]
     Active Substance: GOSERELIN ACETATE
     Indication: PROSTATE CANCER METASTATIC
     Dosage: UNK
     Route: 065
  2. CASODEX [Suspect]
     Active Substance: BICALUTAMIDE
     Indication: PROSTATE CANCER METASTATIC
     Dosage: UNK
     Route: 065
  3. VEDOLIZUMAB [Suspect]
     Active Substance: VEDOLIZUMAB
     Indication: CROHN^S DISEASE
     Dosage: 300 MILLIGRAM
     Route: 042
     Dates: start: 20200206
  4. ZOLADEX [Suspect]
     Active Substance: GOSERELIN ACETATE
     Indication: BONE CANCER
  5. CASODEX [Suspect]
     Active Substance: BICALUTAMIDE
     Indication: BONE CANCER

REACTIONS (4)
  - Metastases to bone [Unknown]
  - Nausea [Unknown]
  - Diarrhoea [Unknown]
  - Prostate cancer metastatic [Unknown]
